FAERS Safety Report 4782477-5 (Version None)
Quarter: 2005Q3

REPORT INFORMATION
  Report Type: 
  Country: None (occurrence: None)
  Receive Date: 20050929
  Receipt Date: 20041209
  Transmission Date: 20060218
  Serious: No
  Sender: FDA-Public Use
  Company Number: 393047

PATIENT
  Age: 70 Year
  Sex: Male

DRUGS (7)
  1. COREG [Suspect]
     Dosage: 3.125MG TWICE PER DAY
     Route: 048
     Dates: start: 20040101
  2. ISOSORBIDE DINITRATE [Concomitant]
  3. LISINOPRIL [Concomitant]
  4. RANITIDINE [Concomitant]
  5. TRAZODONE [Concomitant]
  6. VITAMINS [Concomitant]
  7. ASPIRIN [Concomitant]

REACTIONS (1)
  - STOMACH DISCOMFORT [None]
